FAERS Safety Report 5515673-X (Version None)
Quarter: 2007Q4

REPORT INFORMATION
  Report Type: 
  Country: None (occurrence: None)
  Receive Date: 20071113
  Receipt Date: 20070813
  Transmission Date: 20080405
  Serious: No
  Sender: FDA-Public Use
  Company Number: A0669792A

PATIENT
  Age: 64 Year
  Sex: Female

DRUGS (7)
  1. COREG [Suspect]
     Indication: HYPERTENSION
     Dosage: 12.5MG TWICE PER DAY
     Route: 048
  2. CALCIUM [Concomitant]
  3. DEMADEX [Concomitant]
  4. ASPIRIN [Concomitant]
  5. CRESTOR [Concomitant]
  6. ACCUPRIL [Concomitant]
  7. MYLANTA [Concomitant]

REACTIONS (2)
  - DIZZINESS [None]
  - DYSPEPSIA [None]
